FAERS Safety Report 21902157 (Version 12)
Quarter: 2025Q3

REPORT INFORMATION
  Report Type: Spontaneous
  Country: US (occurrence: US)
  Receive Date: 20230124
  Receipt Date: 20250816
  Transmission Date: 20251020
  Serious: No
  Sender: ALEXION PHARMACEUTICALS
  Company Number: US-ALXN-A202300656

PATIENT
  Age: 57 Year
  Sex: Female

DRUGS (1)
  1. STRENSIQ [Suspect]
     Active Substance: ASFOTASE ALFA
     Indication: Hypophosphatasia
     Dosage: UNK TIW
     Dates: start: 20230118

REACTIONS (11)
  - Tremor [Unknown]
  - Muscular weakness [Unknown]
  - Fatigue [Unknown]
  - Pain [Recovering/Resolving]
  - Increased tendency to bruise [Unknown]
  - Headache [Unknown]
  - Nausea [Unknown]
  - Injection site pain [Recovered/Resolved]
  - Injection site erythema [Unknown]
  - Injection site discolouration [Recovered/Resolved]
  - Injection site reaction [Recovering/Resolving]

NARRATIVE: CASE EVENT DATE: 20230118
